FAERS Safety Report 14339094 (Version 2)
Quarter: 2018Q1

REPORT INFORMATION
  Report Type: Other
  Country: FR (occurrence: FR)
  Receive Date: 20171230
  Receipt Date: 20180216
  Transmission Date: 20180509
  Serious: Yes (Other)
  Sender: FDA-Public Use
  Company Number: FR-MACLEODS PHARMACEUTICALS US LTD-MAC2017007694

PATIENT

DRUGS (2)
  1. AMLODIPINE BESYLATE. [Suspect]
     Active Substance: AMLODIPINE BESYLATE
     Indication: BLOOD PRESSURE MANAGEMENT
     Dosage: 5 MG, QD, 1X/DAY, CAPSULE, HARD
     Route: 048
     Dates: start: 2014
  2. OLMESARTAN 40 MG FILM COATED TABLET [Suspect]
     Active Substance: OLMESARTAN
     Indication: BLOOD PRESSURE MANAGEMENT
     Dosage: 40 MG, QD, 1X/DAY
     Route: 048
     Dates: start: 2014

REACTIONS (2)
  - Autoimmune disorder [Recovered/Resolved]
  - Drug-induced liver injury [Recovered/Resolved]
